FAERS Safety Report 10039084 (Version 1)
Quarter: 2014Q1

REPORT INFORMATION
  Report Type: Spontaneous
  Country: US (occurrence: US)
  Receive Date: 20140326
  Receipt Date: 20140326
  Transmission Date: 20141002
  Serious: Yes (Hospitalization)
  Sender: FDA-Public Use
  Company Number: PHEH2014US005751

PATIENT
  Sex: Male

DRUGS (3)
  1. CLOZARIL [Suspect]
     Dosage: UNK
     Dates: start: 1999
  2. CLOZAPINE [Suspect]
     Dosage: UNK
  3. REMERON [Concomitant]
     Dosage: UNK

REACTIONS (6)
  - Abnormal behaviour [Unknown]
  - Agitation [Unknown]
  - Malaise [Unknown]
  - Decreased appetite [Unknown]
  - Somnolence [Unknown]
  - Restlessness [Unknown]
